FAERS Safety Report 5190883-2 (Version None)
Quarter: 2006Q4

REPORT INFORMATION
  Report Type: 
  Country: None (occurrence: None)
  Receive Date: 20061222
  Receipt Date: 20061213
  Transmission Date: 20070319
  Serious: Yes (Other)
  Sender: FDA-Public Use
  Company Number: JP-NOVOPROD-259395

PATIENT
  Age: 51 Year
  Sex: Male

DRUGS (4)
  1. GLUCAGON [Suspect]
     Indication: ENDOSCOPY UPPER GASTROINTESTINAL TRACT
     Dates: start: 20061207, end: 20061207
  2. ARTIST [Concomitant]
     Route: 048
  3. ISOSORBIDE MONONITRATE [Concomitant]
     Route: 048
  4. GASTER D [Concomitant]
     Route: 048

REACTIONS (2)
  - FALL [None]
  - LOSS OF CONSCIOUSNESS [None]
